FAERS Safety Report 16773745 (Version 1)
Quarter: 2019Q3

REPORT INFORMATION
  Report Type: Spontaneous
  Country: CN (occurrence: CN)
  Receive Date: 20190904
  Receipt Date: 20190904
  Transmission Date: 20191005
  Serious: Yes (Life-Threatening)
  Sender: FDA-Public Use
  Company Number: PHHY2019CN206009

PATIENT
  Age: 7 Month

DRUGS (2)
  1. TRILEPTAL [Suspect]
     Active Substance: OXCARBAZEPINE
     Dosage: 1.3 ML, BID
     Route: 048
  2. TRILEPTAL [Suspect]
     Active Substance: OXCARBAZEPINE
     Indication: EPILEPSY
     Dosage: 0.65 ML, BID
     Route: 048

REACTIONS (9)
  - Rash [Unknown]
  - Swelling [Unknown]
  - Generalised erythema [Unknown]
  - Ocular hyperaemia [Unknown]
  - Cerebral disorder [Unknown]
  - Off label use [Unknown]
  - Muscle spasms [Unknown]
  - Pyrexia [Unknown]
  - Pruritus [Unknown]
